FAERS Safety Report 9812041 (Version 13)
Quarter: 2016Q4

REPORT INFORMATION
  Report Type: Spontaneous
  Country: US (occurrence: US)
  Receive Date: 20140110
  Receipt Date: 20161111
  Transmission Date: 20170207
  Serious: Yes (Hospitalization, Other)
  Sender: FDA-Public Use
  Company Number: US-SA-2013SA105333

PATIENT
  Age: 59 Year
  Sex: Male
  Weight: 103.41 kg

DRUGS (17)
  1. PREVACID [Concomitant]
     Active Substance: LANSOPRAZOLE
     Route: 048
     Dates: end: 20100917
  2. ASPIRIN. [Suspect]
     Active Substance: ASPIRIN
     Route: 048
     Dates: start: 2009, end: 2010
  3. VYTORIN [Concomitant]
     Active Substance: EZETIMIBE\SIMVASTATIN
     Dosage: DOSE :10-40 MG DAILY
     Route: 065
  4. PLAVIX [Suspect]
     Active Substance: CLOPIDOGREL BISULFATE
     Indication: THROMBOSIS PROPHYLAXIS
     Dosage: EACH TIME WENT IN HOSPITAL FOR GASTRIC TESTS ETC. WAS TAKEN OFF PLV
     Route: 048
     Dates: start: 200909, end: 201405
  5. SIMVASTATIN. [Concomitant]
     Active Substance: SIMVASTATIN
     Route: 048
     Dates: end: 20100916
  6. NORVASC [Concomitant]
     Active Substance: AMLODIPINE BESYLATE
     Route: 048
     Dates: end: 20100917
  7. SOTALOL. [Concomitant]
     Active Substance: SOTALOL
  8. PLAVIX [Suspect]
     Active Substance: CLOPIDOGREL BISULFATE
     Indication: ACUTE CORONARY SYNDROME
     Dosage: EACH TIME WENT IN HOSPITAL FOR GASTRIC TESTS ETC. WAS TAKEN OFF PLV
     Route: 048
     Dates: start: 200909, end: 201405
  9. NORVASC [Concomitant]
     Active Substance: AMLODIPINE BESYLATE
     Route: 065
  10. ZETIA [Concomitant]
     Active Substance: EZETIMIBE
     Route: 048
     Dates: end: 20100917
  11. ELIQUIS [Concomitant]
     Active Substance: APIXABAN
  12. PROTONIX [Concomitant]
     Active Substance: PANTOPRAZOLE SODIUM
  13. PLAVIX [Suspect]
     Active Substance: CLOPIDOGREL BISULFATE
     Indication: CORONARY ARTERY DISEASE
     Dosage: EACH TIME WENT IN HOSPITAL FOR GASTRIC TESTS ETC. WAS TAKEN OFF PLV
     Route: 048
     Dates: start: 200909, end: 201405
  14. METOPROLOL. [Concomitant]
     Active Substance: METOPROLOL
     Route: 065
  15. PLAVIX [Suspect]
     Active Substance: CLOPIDOGREL BISULFATE
     Indication: STENT PLACEMENT
     Dosage: EACH TIME WENT IN HOSPITAL FOR GASTRIC TESTS ETC. WAS TAKEN OFF PLV
     Route: 048
     Dates: start: 200909, end: 201405
  16. LISINOPRIL. [Concomitant]
     Active Substance: LISINOPRIL
     Route: 065
  17. RANEXA [Concomitant]
     Active Substance: RANOLAZINE
     Route: 048
     Dates: end: 20100917

REACTIONS (9)
  - Cerebral haemorrhage [Unknown]
  - Blood disorder [Unknown]
  - Dyspnoea [Unknown]
  - Palpitations [Unknown]
  - Thrombosis [Unknown]
  - Gastrointestinal haemorrhage [Unknown]
  - Heart rate abnormal [Unknown]
  - Ulcer haemorrhage [Unknown]
  - Atrial fibrillation [Unknown]

NARRATIVE: CASE EVENT DATE: 2011
